FAERS Safety Report 6651646-1 (Version None)
Quarter: 2010Q1

REPORT INFORMATION
  Report Type: 
  Country: None (occurrence: None)
  Receive Date: 20100325
  Receipt Date: 20100317
  Transmission Date: 20100710
  Serious: Yes (Death, Hospitalization, Other)
  Sender: FDA-Public Use
  Company Number: US-AMGEN-QUU390920

PATIENT
  Sex: Male

DRUGS (4)
  1. NPLATE [Suspect]
     Indication: IDIOPATHIC THROMBOCYTOPENIC PURPURA
     Route: 058
     Dates: start: 20090122, end: 20090406
  2. PREDNISONE TAB [Concomitant]
  3. GRANULOCYTE COLONY STIMULATING FACTOR [Concomitant]
  4. EPOGEN [Concomitant]
     Route: 058

REACTIONS (5)
  - ACUTE MYELOID LEUKAEMIA [None]
  - BONE MARROW TRANSPLANT [None]
  - DRUG INEFFECTIVE [None]
  - GINGIVAL BLEEDING [None]
  - PYREXIA [None]
